FAERS Safety Report 4636887-7 (Version None)
Quarter: 2005Q2

REPORT INFORMATION
  Report Type: 
  Country: None (occurrence: None)
  Receive Date: 20050415
  Receipt Date: 20050317
  Transmission Date: 20051028
  Serious: Yes (Hospitalization, Disabling)
  Sender: FDA-Public Use
  Company Number: US-MERCK-0503USA03085

PATIENT
  Age: 81 Year
  Sex: Female

DRUGS (4)
  1. VIOXX [Suspect]
     Indication: ARTHRITIS
     Route: 048
     Dates: start: 20011101, end: 20040801
  2. VERAPAMIL [Concomitant]
     Route: 065
  3. LESCOL [Concomitant]
     Route: 065
  4. ISOSORBIDE [Concomitant]
     Route: 065

REACTIONS (3)
  - CARDIAC DISORDER [None]
  - DIFFICULTY IN WALKING [None]
  - DUODENAL ULCER HAEMORRHAGE [None]
